FAERS Safety Report 9529739 (Version 2)
Quarter: 2013Q3

REPORT INFORMATION
  Report Type: Spontaneous
  Country: FR (occurrence: FR)
  Receive Date: 20130917
  Receipt Date: 20130930
  Transmission Date: 20140515
  Serious: Yes (Hospitalization)
  Sender: FDA-Public Use
  Company Number: FR-GLAXOSMITHKLINE-B0921242A

PATIENT
  Age: 70 Year
  Sex: Male

DRUGS (12)
  1. AZANTAC [Suspect]
     Indication: PREMEDICATION
     Dosage: 50MG SINGLE DOSE
     Route: 042
     Dates: start: 20130621, end: 20130621
  2. ZOPHREN [Suspect]
     Indication: PROPHYLAXIS OF NAUSEA AND VOMITING
     Dosage: 8MG SINGLE DOSE
     Route: 042
     Dates: start: 20130621, end: 20130621
  3. PACLITAXEL [Suspect]
     Indication: SQUAMOUS CELL CARCINOMA OF LUNG
     Dosage: 158MG CYCLIC
     Route: 042
     Dates: start: 20130621, end: 20130621
  4. DEXAMETHASONE [Suspect]
     Indication: PREMEDICATION
     Dosage: 8MG SINGLE DOSE
     Route: 042
     Dates: start: 20130621, end: 20130621
  5. EMEND [Suspect]
     Indication: PROPHYLAXIS OF NAUSEA AND VOMITING
     Dosage: 125MG SINGLE DOSE
     Route: 048
     Dates: start: 20130621, end: 20130621
  6. POLARAMINE [Suspect]
     Indication: PREMEDICATION
     Dosage: 5MG SINGLE DOSE
     Route: 042
     Dates: start: 20130621, end: 20130621
  7. PRADAXA [Concomitant]
     Route: 065
  8. FLECAINE [Concomitant]
     Route: 065
  9. CARDENSIEL [Concomitant]
     Route: 065
  10. COOLMETEC [Concomitant]
     Route: 065
  11. LERCAN [Concomitant]
     Route: 065
  12. CARBOPLATIN [Concomitant]
     Indication: SQUAMOUS CELL CARCINOMA OF LUNG
     Route: 065

REACTIONS (2)
  - Sense of oppression [Recovered/Resolved]
  - Erythema [Recovered/Resolved]
